FAERS Safety Report 7579057-5 (Version None)
Quarter: 2011Q2

REPORT INFORMATION
  Report Type: 
  Country: None (occurrence: None)
  Receive Date: 20110628
  Receipt Date: 20110617
  Transmission Date: 20111010
  Serious: Yes (Hospitalization)
  Sender: FDA-Public Use
  Company Number: PHHY2011IN56200

PATIENT
  Age: 25 Year
  Sex: Female

DRUGS (4)
  1. VERPAMIL HCL [Suspect]
     Dosage: 25 DF, UNK
  2. METOPROLOL TARTRATE [Suspect]
     Dosage: 20 DF, UNK
  3. SERTRALINE HYDROCHLORIDE [Concomitant]
     Indication: DEPRESSION
  4. CLONAZEPAM [Concomitant]
     Indication: DEPRESSION

REACTIONS (12)
  - OPTIC ISCHAEMIC NEUROPATHY [None]
  - MYDRIASIS [None]
  - BLOOD PRESSURE DECREASED [None]
  - BLINDNESS [None]
  - IRRITABILITY [None]
  - VISUAL ACUITY REDUCED [None]
  - BRADYCARDIA [None]
  - SUICIDE ATTEMPT [None]
  - PALLOR [None]
  - HEMIANOPIA [None]
  - ATRIOVENTRICULAR BLOCK FIRST DEGREE [None]
  - INTENTIONAL OVERDOSE [None]
